FAERS Safety Report 6084939-X (Version None)
Quarter: 2009Q1

REPORT INFORMATION
  Report Type: 
  Country: None (occurrence: None)
  Receive Date: 20090220
  Receipt Date: 20090212
  Transmission Date: 20090719
  Serious: No
  Sender: FDA-Public Use
  Company Number: US-JNJFOC-20090203710

PATIENT
  Sex: Female
  Weight: 83.92 kg

DRUGS (11)
  1. DURAGESIC-100 [Suspect]
     Indication: INTERVERTEBRAL DISC PROTRUSION
     Route: 062
  2. HYDROCODONE BITARTRATE [Concomitant]
     Indication: PAIN
     Dosage: AS NEEDED
     Route: 048
  3. NEURONTIN [Concomitant]
     Indication: NEURALGIA
     Route: 048
  4. METFORMIN HCL [Concomitant]
     Indication: DIABETES MELLITUS
     Route: 048
  5. GLYBURIDE [Concomitant]
     Indication: DIABETES MELLITUS
     Route: 048
  6. HYDROXYZINE [Concomitant]
     Indication: MULTIPLE ALLERGIES
     Dosage: AS NEEDED
     Route: 048
  7. ZOLOFT [Concomitant]
     Indication: BIPOLAR I DISORDER
     Route: 048
  8. LASIX [Concomitant]
     Indication: FLUID RETENTION
     Dosage: AS NEEDED
     Route: 048
  9. POTASSIUM CHLORIDE [Concomitant]
     Indication: FLUID RETENTION
     Route: 048
  10. LISINOPRIL [Concomitant]
     Indication: BLOOD PRESSURE
     Route: 048
  11. ATIVAN [Concomitant]
     Indication: ANXIETY
     Dosage: AS NEEDED
     Route: 048

REACTIONS (6)
  - DEVICE LEAKAGE [None]
  - DISORIENTATION [None]
  - HYPERSOMNIA [None]
  - TREATMENT NONCOMPLIANCE [None]
  - URTICARIA [None]
  - WRONG TECHNIQUE IN DRUG USAGE PROCESS [None]
